FAERS Safety Report 17805706 (Version 3)
Quarter: 2020Q3

REPORT INFORMATION
  Report Type: Report from Study
  Country: KR (occurrence: KR)
  Receive Date: 20200520
  Receipt Date: 20200830
  Transmission Date: 20201102
  Serious: Yes (Hospitalization, Other)
  Sender: FDA-Public Use
  Company Number: KR-SA-2019SA148329

PATIENT

DRUGS (15)
  1. CEMIPLIMAB [Suspect]
     Active Substance: CEMIPLIMAB
     Indication: LYMPHOMA
     Dosage: 250 MG, QOW (FROM 16:39 TO 17:09)
     Route: 042
     Dates: start: 20190610, end: 20190610
  2. MEGESTROL [Concomitant]
     Active Substance: MEGESTROL
     Dosage: UNK
     Route: 048
     Dates: start: 20190603
  3. ISATUXIMAB [Suspect]
     Active Substance: ISATUXIMAB
     Dosage: 10 MG/KG, QW (FROM 16:50 TO 18:20)
     Route: 042
     Dates: start: 20190528, end: 20190528
  4. ACYCLOVIR [ACICLOVIR] [Concomitant]
     Active Substance: ACYCLOVIR
     Dosage: UNK
     Route: 048
     Dates: start: 20190603, end: 20190610
  5. CORTISOLU [Concomitant]
     Active Substance: HYDROCORTISONE SODIUM SUCCINATE
     Indication: PROPHYLAXIS
     Dosage: UNK
     Route: 042
     Dates: start: 20190617, end: 20190617
  6. ISATUXIMAB [Suspect]
     Active Substance: ISATUXIMAB
     Indication: LYMPHOMA
     Dosage: 10 MG/KG, QW, (FROM 17:23 TO 19:55)
     Route: 042
     Dates: start: 20190610, end: 20190610
  7. RANITIDINE. [Concomitant]
     Active Substance: RANITIDINE
     Indication: PROPHYLAXIS
     Dosage: 50 MG, 1X
     Route: 042
     Dates: start: 20190610, end: 20190610
  8. ISATUXIMAB [Suspect]
     Active Substance: ISATUXIMAB
     Dosage: 10 MG/KG, QW  (FROM 13:01 TO 15:37)
     Route: 042
     Dates: start: 20190528, end: 20190528
  9. CEMIPLIMAB [Suspect]
     Active Substance: CEMIPLIMAB
     Dosage: 250 MG, QOW (FROM 13:33 TO 14:13)
     Route: 042
     Dates: start: 20190527, end: 20190527
  10. ACETAMINOPHEN. [Concomitant]
     Active Substance: ACETAMINOPHEN
     Indication: PROPHYLAXIS
     Dosage: 650 MG, 1X
     Route: 048
     Dates: start: 20190610, end: 20190610
  11. DEXAMETHASONE. [Concomitant]
     Active Substance: DEXAMETHASONE
     Indication: PROPHYLAXIS
     Dosage: 20 MG, 1X
     Route: 042
     Dates: start: 20190610, end: 20190610
  12. RANITIDINE. [Concomitant]
     Active Substance: RANITIDINE
     Dosage: 50 MG, 1X
     Route: 042
     Dates: start: 20190528, end: 20190528
  13. CHLORPHENIRAMINE [CHLORPHENAMINE] [Concomitant]
     Active Substance: CHLORPHENIRAMINE
     Indication: PROPHYLAXIS
     Dosage: UNK
     Route: 042
     Dates: start: 20190617, end: 20190617
  14. PHAZYME [DIASTASE;PANCREATIN;PEPSIN;SIMETICONE] [Concomitant]
     Indication: PROPHYLAXIS
     Dosage: OUT LAYER: SIMETHICONE 25MG , INNER ENTERIC COATED LAYER : SIMETHICONE 70MG ,
     Route: 048
     Dates: start: 20190526, end: 20190603
  15. ZOLPIDEM [Concomitant]
     Active Substance: ZOLPIDEM TARTRATE
     Dosage: UNK
     Route: 048
     Dates: start: 20190614

REACTIONS (5)
  - Gastrointestinal haemorrhage [Recovered/Resolved]
  - Infusion related reaction [Recovered/Resolved]
  - Platelet count decreased [Recovered/Resolved]
  - Infusion related reaction [Recovered/Resolved]
  - Anaemia [Recovered/Resolved]

NARRATIVE: CASE EVENT DATE: 20190528
